FAERS Safety Report 17687678 (Version 1)
Quarter: 2020Q2

REPORT INFORMATION
  Report Type: Spontaneous
  Country: US (occurrence: US)
  Receive Date: 20200419
  Receipt Date: 20200419
  Transmission Date: 20200714
  Serious: No
  Sender: FDA-Public Use
  Company Number: None

PATIENT
  Age: 58 Year
  Sex: Male

DRUGS (1)
  1. EPCLUSA [Suspect]
     Active Substance: SOFOSBUVIR\VELPATASVIR
     Dosage: OTHER DOSE:400-100MG;?
     Route: 048
     Dates: start: 20200410

REACTIONS (6)
  - Dizziness [None]
  - Fatigue [None]
  - Hypersomnia [None]
  - Flank pain [None]
  - Faeces discoloured [None]
  - Chromaturia [None]

NARRATIVE: CASE EVENT DATE: 20200419
